FAERS Safety Report 10184829 (Version 1)
Quarter: 2014Q2

REPORT INFORMATION
  Report Type: Spontaneous
  Country: US (occurrence: None)
  Receive Date: 20140520
  Receipt Date: 20140520
  Transmission Date: 20141212
  Serious: Yes (Other)
  Sender: FDA-Public Use
  Company Number: None

PATIENT
  Age: 55 Year
  Sex: Female
  Weight: 64.41 kg

DRUGS (4)
  1. BUTABITAL [Suspect]
     Indication: HEADACHE
     Dosage: 1-2 PILLS EVERY 6 HOURS AS NEEDED TAKEN BY MOUTH
     Route: 048
     Dates: start: 20140430, end: 20140501
  2. BUTABITAL [Suspect]
     Indication: TINNITUS
     Dosage: 1-2 PILLS EVERY 6 HOURS AS NEEDED TAKEN BY MOUTH
     Route: 048
     Dates: start: 20140430, end: 20140501
  3. BUTABITAL [Suspect]
     Indication: EYE IRRITATION
     Dosage: 1-2 PILLS EVERY 6 HOURS AS NEEDED TAKEN BY MOUTH
     Route: 048
     Dates: start: 20140430, end: 20140501
  4. BUTABITAL [Suspect]
     Indication: EYE SWELLING
     Dosage: 1-2 PILLS EVERY 6 HOURS AS NEEDED TAKEN BY MOUTH
     Route: 048
     Dates: start: 20140430, end: 20140501

REACTIONS (4)
  - Nightmare [None]
  - Pain [None]
  - Emotional disorder [None]
  - Suicidal ideation [None]
